FAERS Safety Report 4676553-5 (Version None)
Quarter: 2005Q2

REPORT INFORMATION
  Report Type: 
  Country: None (occurrence: None)
  Receive Date: 20050526
  Receipt Date: 20050526
  Transmission Date: 20051028
  Serious: Yes (Hospitalization, Other)
  Sender: FDA-Public Use
  Company Number: None

PATIENT
  Sex: Female
  Weight: 24.2 kg

DRUGS (4)
  1. STRATTERA [Suspect]
     Indication: ATTENTION DEFICIT/HYPERACTIVITY DISORDER
     Dosage: 25 MG   QD    ORAL
     Route: 048
     Dates: start: 20050301, end: 20050425
  2. TYLENOL CHILDREN'S   MCNEIL PHARMACEUTICALS [Suspect]
     Indication: PAIN
     Dosage: PRN   ORAL
     Route: 048
  3. URSODIOL [Concomitant]
  4. ADEKS [Concomitant]

REACTIONS (6)
  - CHOLESTASIS [None]
  - GALLBLADDER DISORDER [None]
  - HEPATIC NECROSIS [None]
  - HEPATITIS [None]
  - HEPATITIS INFECTIOUS [None]
  - HYPERTENSION [None]
